FAERS Safety Report 4313332-2 (Version None)
Quarter: 2004Q1

REPORT INFORMATION
  Report Type: 
  Country: None (occurrence: None)
  Receive Date: 20040304
  Receipt Date: 20040224
  Transmission Date: 20041129
  Serious: Yes (Life-Threatening)
  Sender: FDA-Public Use
  Company Number: FR-JNJFOC-20040205723

PATIENT
  Age: 93 Year
  Sex: Female

DRUGS (8)
  1. REMINYL [Suspect]
     Indication: DEMENTIA ALZHEIMER'S TYPE
     Dosage: 8 MG, ORAL
     Route: 048
     Dates: start: 20040122, end: 20040129
  2. RISPERDAL [Suspect]
     Indication: DRUG USE FOR UNKNOWN INDICATION
     Dosage: 1 MG, ORAL
     Route: 048
     Dates: start: 20040123, end: 20040129
  3. SELOKEN (METOPROLOL TARTRATE) UNKNOWN [Suspect]
     Indication: DRUG USE FOR UNKNOWN INDICATION
     Dosage: 350 MG, ORAL
     Route: 048
     Dates: start: 20040128, end: 20040129
  4. MEMANTINE HCL [Concomitant]
  5. HEMIGOXINE (DIGOXIN) [Concomitant]
  6. OMEPRAZOLE [Concomitant]
  7. IMOVANE (ZOPICLONE) [Concomitant]
  8. TRIFLUCAN (FLUCONAZOLE) TABLETS [Concomitant]

REACTIONS (3)
  - BRADYARRHYTHMIA [None]
  - BRADYCARDIA [None]
  - DRUG INTERACTION [None]
